FAERS Safety Report 6963992-2 (Version None)
Quarter: 2010Q3

REPORT INFORMATION
  Report Type: 
  Country: None (occurrence: None)
  Receive Date: 20100902
  Receipt Date: 20100902
  Transmission Date: 20110219
  Serious: No
  Sender: FDA-Public Use
  Company Number: None

PATIENT
  Age: 39 Year
  Sex: Female
  Weight: 58.9676 kg

DRUGS (1)
  1. NITROFURANTOIN [Suspect]
     Indication: CYSTITIS
     Dosage: 1 CAPSULE TWICE DAILY PO
     Route: 048
     Dates: start: 20100830, end: 20100831

REACTIONS (9)
  - ASTHMA [None]
  - CHEST PAIN [None]
  - CHILLS [None]
  - COUGH [None]
  - DYSPNOEA [None]
  - ILL-DEFINED DISORDER [None]
  - INFLUENZA [None]
  - PAIN [None]
  - PYREXIA [None]
